FAERS Safety Report 7082556-6 (Version None)
Quarter: 2010Q3

REPORT INFORMATION
  Report Type: 
  Country: None (occurrence: None)
  Receive Date: 20100929
  Receipt Date: 20100715
  Transmission Date: 20110219
  Serious: No
  Sender: FDA-Public Use
  Company Number: US-WYE-H16249110

PATIENT
  Age: 30 Year
  Sex: Female
  Weight: 72.19 kg

DRUGS (1)
  1. PRISTIQ [Suspect]
     Indication: DEPRESSION
     Dosage: 50 MG 1X PER 1 DAY
     Dates: start: 20091116

REACTIONS (7)
  - DRUG WITHDRAWAL SYNDROME [None]
  - DYSKINESIA [None]
  - FEELING ABNORMAL [None]
  - MUSCLE SPASMS [None]
  - MUSCLE TWITCHING [None]
  - PARAESTHESIA [None]
  - UNEVALUABLE EVENT [None]
